FAERS Safety Report 16122373 (Version 1)
Quarter: 2019Q2

REPORT INFORMATION
  Report Type: Spontaneous
  Country: US (occurrence: US)
  Receive Date: 20190326
  Receipt Date: 20190326
  Transmission Date: 20190711
  Serious: Yes (Hospitalization)
  Sender: FDA-Public Use
  Company Number: None

PATIENT
  Age: 51 Year
  Sex: Male
  Weight: 121.95 kg

DRUGS (3)
  1. PROTONIX [Suspect]
     Active Substance: PANTOPRAZOLE SODIUM
     Indication: PRODUCT USED FOR UNKNOWN INDICATION
  2. DENOSUMAB [Suspect]
     Active Substance: DENOSUMAB
     Indication: VITAMIN D DEFICIENCY
  3. DENOSUMAB [Suspect]
     Active Substance: DENOSUMAB
     Indication: METASTASES TO BONE

REACTIONS (7)
  - Tachycardia [None]
  - Hypocalcaemia [None]
  - Autoimmune nephritis [None]
  - Acute kidney injury [None]
  - Urinary retention [None]
  - Tubulointerstitial nephritis [None]
  - White blood cell count increased [None]

NARRATIVE: CASE EVENT DATE: 20190211
